FAERS Safety Report 9736129 (Version 1)
Quarter: 2013Q4

REPORT INFORMATION
  Report Type: Report from Study
  Country: US (occurrence: US)
  Receive Date: 20131206
  Receipt Date: 20131206
  Transmission Date: 20140711
  Serious: Yes (Other)
  Sender: FDA-Public Use
  Company Number: US-ABBVIE-13P-163-1174607-00

PATIENT
  Age: 45 Year
  Sex: Female

DRUGS (4)
  1. HUMIRA [Suspect]
     Indication: RHEUMATOID ARTHRITIS
  2. METHOTREXATE [Concomitant]
     Indication: RHEUMATOID ARTHRITIS
  3. FOLIC ACID [Concomitant]
     Indication: PRODUCT USED FOR UNKNOWN INDICATION
  4. SULFASALAZINE [Concomitant]
     Indication: RHEUMATOID ARTHRITIS

REACTIONS (10)
  - Synovial cyst [Recovering/Resolving]
  - Carpal tunnel syndrome [Unknown]
  - Squamous cell carcinoma of skin [Unknown]
  - Skin papilloma [Unknown]
  - Fibroma [Unknown]
  - Rash papular [Unknown]
  - Drug hypersensitivity [Unknown]
  - Breast mass [Unknown]
  - Pain in extremity [Unknown]
  - Pain in extremity [Recovering/Resolving]
